FAERS Safety Report 8225784-6 (Version None)
Quarter: 2012Q1

REPORT INFORMATION
  Report Type: 
  Country: None (occurrence: None)
  Receive Date: 20120319
  Receipt Date: 20120309
  Transmission Date: 20120608
  Serious: Yes (Other)
  Sender: FDA-Public Use
  Company Number: ACO_29380_2012

PATIENT
  Age: 59 Year
  Sex: Male
  Weight: 74.8 kg

DRUGS (3)
  1. AMPYRA [Suspect]
     Indication: GAIT DISTURBANCE
     Dosage: 10 MG, BID, ORAL
     Route: 048
     Dates: start: 20120201, end: 20120201
  2. REBIF [Concomitant]
  3. FOSAMAX [Concomitant]

REACTIONS (6)
  - HEADACHE [None]
  - LOWER LIMB FRACTURE [None]
  - INFLUENZA LIKE ILLNESS [None]
  - GAIT DISTURBANCE [None]
  - BALANCE DISORDER [None]
  - FALL [None]
